FAERS Safety Report 6809317-4 (Version None)
Quarter: 2010Q2

REPORT INFORMATION
  Report Type: 
  Country: None (occurrence: None)
  Receive Date: 20100630
  Receipt Date: 20100616
  Transmission Date: 20101027
  Serious: Yes (Hospitalization)
  Sender: FDA-Public Use
  Company Number: SI-RANBAXY-2010RR-34496

PATIENT
  Age: 26 Year
  Sex: Male

DRUGS (1)
  1. LEKADOL [Suspect]
     Dosage: 50 MG, UNK
     Route: 048

REACTIONS (1)
  - DRUG ERUPTION [None]
